FAERS Safety Report 16117594 (Version 4)
Quarter: 2019Q2

REPORT INFORMATION
  Report Type: Spontaneous
  Country: UA (occurrence: UA)
  Receive Date: 20190326
  Receipt Date: 20190409
  Transmission Date: 20190711
  Serious: Yes (Other)
  Sender: FDA-Public Use
  Company Number: PHHY2019UA063001

PATIENT
  Age: 11 Year
  Sex: Female

DRUGS (4)
  1. GLIVEC [Suspect]
     Active Substance: IMATINIB MESYLATE
     Indication: ACUTE LYMPHOCYTIC LEUKAEMIA
     Dosage: 300 MG, QD
     Route: 065
  2. BISEPTOL [Concomitant]
     Active Substance: SULFAMETHOXAZOLE\TRIMETHOPRIM
     Indication: ACUTE LYMPHOCYTIC LEUKAEMIA
     Dosage: UNK
     Route: 065
  3. METHOTREXATE. [Suspect]
     Active Substance: METHOTREXATE
     Indication: ACUTE LYMPHOCYTIC LEUKAEMIA
     Dosage: UNK
     Route: 065
  4. 6-MERCAPTOPURINE MONOHYDRATE [Concomitant]
     Active Substance: MERCAPTOPURINE
     Indication: ACUTE LYMPHOCYTIC LEUKAEMIA
     Dosage: UNK
     Route: 065

REACTIONS (11)
  - Bone marrow failure [Unknown]
  - Pancreatitis acute [Unknown]
  - Thrombocytopenia [Unknown]
  - Hepatitis toxic [Unknown]
  - Gastritis [Unknown]
  - Bronchitis [Unknown]
  - Peritonitis [Unknown]
  - Gastrointestinal toxicity [Unknown]
  - Osteonecrosis [Unknown]
  - Anaemia [Unknown]
  - Gastrointestinal hypomotility [Unknown]
